FAERS Safety Report 19881341 (Version 3)
Quarter: 2021Q4

REPORT INFORMATION
  Report Type: Spontaneous
  Country: US (occurrence: None)
  Receive Date: 20210925
  Receipt Date: 20211101
  Transmission Date: 20220303
  Serious: Yes (Hospitalization)
  Sender: FDA-Public Use
  Company Number: US-ROCHE-2919560

PATIENT
  Sex: Female

DRUGS (1)
  1. ESBRIET [Suspect]
     Active Substance: PIRFENIDONE
     Indication: Idiopathic pulmonary fibrosis
     Route: 048
     Dates: start: 20210625, end: 20210722

REACTIONS (8)
  - Vision blurred [Unknown]
  - Asthenia [Unknown]
  - Pain in extremity [Unknown]
  - Nausea [Unknown]
  - Dyspnoea [Unknown]
  - Gait inability [Unknown]
  - Rash [Unknown]
  - Panic disorder [Unknown]
